FAERS Safety Report 25672804 (Version 3)
Quarter: 2025Q3

REPORT INFORMATION
  Report Type: Spontaneous
  Country: US (occurrence: US)
  Receive Date: 20250812
  Receipt Date: 20250917
  Transmission Date: 20251021
  Serious: Yes (Other)
  Sender: JOHNSON AND JOHNSON
  Company Number: US-JNJFOC-20250803122

PATIENT

DRUGS (1)
  1. CONCERTA [Suspect]
     Active Substance: METHYLPHENIDATE HYDROCHLORIDE
     Indication: Product used for unknown indication
     Route: 048

REACTIONS (10)
  - Angina pectoris [Unknown]
  - Suicidal ideation [Unknown]
  - Product physical issue [Unknown]
  - Nonspecific reaction [Unknown]
  - Vasodilatation [Unknown]
  - Social anxiety disorder [Unknown]
  - Feeling hot [Unknown]
  - Adverse drug reaction [Unknown]
  - General physical condition abnormal [Unknown]
  - Feeling abnormal [Unknown]
